FAERS Safety Report 6519893-7 (Version None)
Quarter: 2009Q4

REPORT INFORMATION
  Report Type: 
  Country: None (occurrence: None)
  Receive Date: 20091229
  Receipt Date: 20091216
  Transmission Date: 20100525
  Serious: Yes (Death)
  Sender: FDA-Public Use
  Company Number: US-JNJCH-2009032861

PATIENT
  Age: 20 Month
  Sex: Male

DRUGS (1)
  1. DEXTROMETHORPHAN [Suspect]
     Indication: DRUG USE FOR UNKNOWN INDICATION
     Dosage: TEXT:6MG OVER A 13 HOUR PERIOD
     Route: 048

REACTIONS (2)
  - DEATH [None]
  - WRONG DRUG ADMINISTERED [None]
